FAERS Safety Report 6844978-5 (Version None)
Quarter: 2010Q3

REPORT INFORMATION
  Report Type: 
  Country: None (occurrence: None)
  Receive Date: 20100715
  Receipt Date: 20100702
  Transmission Date: 20110219
  Serious: Yes (Hospitalization, Other)
  Sender: FDA-Public Use
  Company Number: JP-PFIZER INC-2010083240

PATIENT
  Age: 52 Year
  Sex: Male

DRUGS (6)
  1. AZULFIDINE [Suspect]
     Indication: RHEUMATOID ARTHRITIS
     Dosage: 250 MG, 2X/DAY
     Route: 048
     Dates: start: 20061226, end: 20070518
  2. AZULFIDINE [Suspect]
     Dosage: 500 MG, 2X/DAY
     Route: 048
     Dates: start: 20070518, end: 20081119
  3. MUCOSTA [Concomitant]
     Indication: GASTRITIS PROPHYLAXIS
     Dosage: 100 MG, 2X/DAY
     Route: 048
     Dates: start: 20000226, end: 20081119
  4. NOVORAPID [Concomitant]
     Dosage: 6 - 10 UNITS BEFORE EACH MEAL
     Route: 058
     Dates: start: 20061226
  5. LANTUS [Concomitant]
     Dosage: 14 UNITS BEFORE BED
     Route: 058
     Dates: start: 20080130
  6. LAMISIL [Concomitant]
     Dosage: 125 MG, 1X/DAY
     Route: 048
     Dates: start: 20080229

REACTIONS (3)
  - ANGINA PECTORIS [None]
  - IMMUNOGLOBULINS DECREASED [None]
  - PYREXIA [None]
